FAERS Safety Report 9967023 (Version 1)
Quarter: 2014Q1

REPORT INFORMATION
  Report Type: Spontaneous
  Country: US (occurrence: US)
  Receive Date: 20140305
  Receipt Date: 20140305
  Transmission Date: 20141002
  Serious: No
  Sender: FDA-Public Use
  Company Number: US-GILEAD-2014-0096068

PATIENT
  Sex: Female

DRUGS (9)
  1. LETAIRIS [Suspect]
     Indication: PRODUCT USED FOR UNKNOWN INDICATION
     Dosage: 5 MG, QD
     Route: 065
     Dates: start: 20120907
  2. PREDNISONE [Concomitant]
     Route: 065
  3. VERAPAMIL [Concomitant]
     Route: 065
  4. ATROVENT [Concomitant]
     Route: 065
  5. ZEGERID                            /06027801/ [Concomitant]
     Route: 065
  6. CALCIUM [Concomitant]
     Route: 065
  7. TESSALON [Concomitant]
     Route: 065
  8. TUSSIONEX                          /00140501/ [Concomitant]
     Route: 065
  9. VITAMIN D NOS [Concomitant]
     Route: 065

REACTIONS (2)
  - Hypertension [Unknown]
  - Heart rate increased [Unknown]
